FAERS Safety Report 9686219 (Version 1)
Quarter: 2013Q4

REPORT INFORMATION
  Report Type: Spontaneous
  Country: CN (occurrence: CN)
  Receive Date: 20131113
  Receipt Date: 20131113
  Transmission Date: 20140711
  Serious: Yes (Hospitalization)
  Sender: FDA-Public Use
  Company Number: PHHY2013CN127830

PATIENT
  Age: 49 Year
  Sex: Female

DRUGS (7)
  1. LORAZEPAM [Suspect]
     Dosage: 2 MG, AT NIGHT
  2. GLICLAZIDE [Concomitant]
  3. METOPROLOL [Concomitant]
  4. CHLORPROMAZINE [Concomitant]
  5. FLUOXETINE [Concomitant]
  6. ZOLPIDEM [Concomitant]
     Dosage: 50 MG, AT NIGHT
  7. ZOLPIDEM [Concomitant]
     Dosage: 300 MG, UNK

REACTIONS (12)
  - Stress cardiomyopathy [Unknown]
  - Convulsion [Unknown]
  - Grand mal convulsion [Unknown]
  - Tremor [Unknown]
  - Electrocardiogram ST segment elevation [Recovered/Resolved]
  - Supraventricular tachycardia [Recovered/Resolved]
  - Metabolic acidosis [Unknown]
  - Ventricular hypokinesia [Unknown]
  - Myocardial bridging [Unknown]
  - Drug dependence [Unknown]
  - Withdrawal syndrome [Unknown]
  - Ejection fraction decreased [Unknown]
